FAERS Safety Report 5677137-2 (Version None)
Quarter: 2008Q1

REPORT INFORMATION
  Report Type: 
  Country: None (occurrence: None)
  Receive Date: 20080324
  Receipt Date: 20080318
  Transmission Date: 20080703
  Serious: Yes (Other)
  Sender: FDA-Public Use
  Company Number: US-BRISTOL-MYERS SQUIBB COMPANY-14119861

PATIENT
  Sex: Female

DRUGS (2)
  1. IXEMPRA [Suspect]
     Dosage: CYCLES-3-4.
  2. HISTAMINE ANTAGONIST [Concomitant]
     Indication: PREMEDICATION

REACTIONS (1)
  - ORTHOSTATIC HYPOTENSION [None]
